FAERS Safety Report 23797796 (Version 5)
Quarter: 2025Q1

REPORT INFORMATION
  Report Type: Report from Study
  Country: US (occurrence: US)
  Receive Date: 20240430
  Receipt Date: 20250326
  Transmission Date: 20250409
  Serious: Yes (Hospitalization, Other)
  Sender: TAKEDA
  Company Number: US-TAKEDA-2024TUS031780

PATIENT
  Age: 77 Year
  Sex: Male

DRUGS (5)
  1. PONATINIB [Suspect]
     Active Substance: PONATINIB
     Indication: Acute myeloid leukaemia
     Dosage: 30 MILLIGRAM, QD
  2. PONATINIB [Suspect]
     Active Substance: PONATINIB
     Dosage: 30 MILLIGRAM, QD
     Dates: start: 20240402
  3. PONATINIB [Suspect]
     Active Substance: PONATINIB
     Dosage: 30 MILLIGRAM, QD
  4. IRON [Suspect]
     Active Substance: IRON
     Indication: Acute myeloid leukaemia
  5. MAGNESIUM [Suspect]
     Active Substance: MAGNESIUM
     Indication: Acute myeloid leukaemia

REACTIONS (20)
  - Infection [Unknown]
  - White blood cell count decreased [Unknown]
  - Localised infection [Not Recovered/Not Resolved]
  - Peripheral swelling [Recovering/Resolving]
  - Insomnia [Unknown]
  - Asthenia [Unknown]
  - Abdominal discomfort [Unknown]
  - Vomiting [Unknown]
  - Product prescribing issue [Unknown]
  - Off label use [Unknown]
  - Body temperature increased [Recovering/Resolving]
  - Decreased immune responsiveness [Recovering/Resolving]
  - Poor venous access [Unknown]
  - Dysuria [Unknown]
  - Pain in extremity [Recovering/Resolving]
  - Haemorrhage [Recovering/Resolving]
  - Dizziness [Unknown]
  - Pyrexia [Recovering/Resolving]
  - Fatigue [Unknown]
  - Abdominal pain upper [Unknown]

NARRATIVE: CASE EVENT DATE: 20240418
